FAERS Safety Report 17916004 (Version 1)
Quarter: 2020Q2

REPORT INFORMATION
  Report Type: Spontaneous
  Country: US (occurrence: US)
  Receive Date: 20200618
  Receipt Date: 20200618
  Transmission Date: 20200714
  Serious: Yes (Disabling)
  Sender: FDA-Public Use
  Company Number: None

PATIENT
  Age: 20 Year
  Weight: 108 kg

DRUGS (1)
  1. CIPROFLOXACIN. [Suspect]
     Active Substance: CIPROFLOXACIN
     Indication: URINARY TRACT INFECTION
     Dosage: ?          QUANTITY:1 CAPSULE(S);?
     Route: 048
     Dates: start: 20180910, end: 20180910

REACTIONS (7)
  - Feeling abnormal [None]
  - Tendon pain [None]
  - Paraesthesia [None]
  - Joint noise [None]
  - Panic attack [None]
  - Nausea [None]
  - Pain [None]

NARRATIVE: CASE EVENT DATE: 20180910
